FAERS Safety Report 5219471-6 (Version None)
Quarter: 2007Q1

REPORT INFORMATION
  Report Type: 
  Country: None (occurrence: None)
  Receive Date: 20070125
  Receipt Date: 20070118
  Transmission Date: 20070707
  Serious: Yes (Other)
  Sender: FDA-Public Use
  Company Number: US-PFIZER INC-2006122822

PATIENT
  Sex: Male

DRUGS (7)
  1. LIPITOR [Suspect]
  2. ARAVA [Concomitant]
  3. FUROSEMIDE [Concomitant]
  4. MOBIC [Concomitant]
  5. GABAPENTIN [Concomitant]
  6. ZYRTEC [Concomitant]
  7. NASONEX [Concomitant]
     Route: 045

REACTIONS (8)
  - AMNESIA [None]
  - ASTHENIA [None]
  - COGNITIVE DISORDER [None]
  - DEPRESSION [None]
  - DISORIENTATION [None]
  - FATIGUE [None]
  - MYOPATHY [None]
  - NEUROPATHY PERIPHERAL [None]
